FAERS Safety Report 10513884 (Version 1)
Quarter: 2014Q4

REPORT INFORMATION
  Report Type: Spontaneous
  Country: US (occurrence: US)
  Receive Date: 20141013
  Receipt Date: 20141013
  Transmission Date: 20150528
  Serious: No
  Sender: FDA-Public Use
  Company Number: US-TEVA-515321USA

PATIENT
  Age: 24 Year
  Sex: Female
  Weight: 70.37 kg

DRUGS (1)
  1. PLAN B ONE-STEP [Suspect]
     Active Substance: LEVONORGESTREL
     Indication: POST COITAL CONTRACEPTION
     Dosage: 1.5 MILLIGRAM DAILY;
     Route: 048
     Dates: start: 201303, end: 201303

REACTIONS (5)
  - Mood swings [Recovered/Resolved]
  - Crying [Recovered/Resolved]
  - Anger [Recovered/Resolved]
  - Depressed mood [Recovered/Resolved]
  - Menstruation irregular [Recovered/Resolved]

NARRATIVE: CASE EVENT DATE: 201303
